FAERS Safety Report 7559397-6 (Version None)
Quarter: 2011Q2

REPORT INFORMATION
  Report Type: 
  Country: None (occurrence: None)
  Receive Date: 20110617
  Receipt Date: 20110617
  Transmission Date: 20111010
  Serious: Yes (Life-Threatening)
  Sender: FDA-Public Use
  Company Number: None

PATIENT
  Age: 62 Year
  Sex: Male
  Weight: 89 kg

DRUGS (1)
  1. ENOXAPARIN [Suspect]
     Indication: DEEP VEIN THROMBOSIS
     Dosage: 130 MG EVERY DAY SQ
     Route: 058
     Dates: start: 20100513, end: 20100528

REACTIONS (3)
  - TUMOUR RUPTURE [None]
  - HAEMORRHAGE INTRACRANIAL [None]
  - SUBARACHNOID HAEMORRHAGE [None]
